FAERS Safety Report 14324083 (Version 1)
Quarter: 2017Q4

REPORT INFORMATION
  Report Type: Report from Study
  Country: BE (occurrence: BE)
  Receive Date: 20171226
  Receipt Date: 20171226
  Transmission Date: 20180321
  Serious: Yes (Hospitalization)
  Sender: FDA-Public Use
  Company Number: BE-SA-2017SA256874

PATIENT
  Age: 26 Year
  Sex: Male
  Weight: 70.5 kg

DRUGS (3)
  1. LEMTRADA [Suspect]
     Active Substance: ALEMTUZUMAB
     Route: 041
     Dates: start: 20140825, end: 20150829
  2. GILENYA [Suspect]
     Active Substance: FINGOLIMOD HYDROCHLORIDE
     Indication: MULTIPLE SCLEROSIS
     Route: 048
  3. GILENYA [Suspect]
     Active Substance: FINGOLIMOD HYDROCHLORIDE
     Indication: MULTIPLE SCLEROSIS
     Route: 048
     Dates: start: 20131121, end: 20140701

REACTIONS (12)
  - Otitis media [Recovered/Resolved]
  - Herpes zoster oticus [Recovered/Resolved with Sequelae]
  - Skin lesion [Unknown]
  - Balance disorder [Recovered/Resolved]
  - Sinusitis [Unknown]
  - White blood cell count increased [Unknown]
  - Oropharyngeal pain [Recovered/Resolved]
  - Lymphocyte count decreased [Unknown]
  - Rash [Recovered/Resolved]
  - Rhinitis allergic [Unknown]
  - Nasopharyngitis [Unknown]
  - Bacterial infection [Unknown]

NARRATIVE: CASE EVENT DATE: 20141110
